FAERS Safety Report 18593457 (Version 1)
Quarter: 2020Q4

REPORT INFORMATION
  Report Type: Spontaneous
  Country: US (occurrence: US)
  Receive Date: 20201208
  Receipt Date: 20201208
  Transmission Date: 20210114
  Serious: Yes (Hospitalization)
  Sender: FDA-Public Use
  Company Number: US-AMAG PHARMACEUTICALS, INC.-AMAG202004085

PATIENT
  Age: 36 Year
  Sex: Female
  Weight: 73.09 kg

DRUGS (1)
  1. MAKENA [Suspect]
     Active Substance: HYDROXYPROGESTERONE CAPROATE
     Indication: PREMATURE DELIVERY
     Route: 058

REACTIONS (4)
  - Injection site pruritus [Recovered/Resolved]
  - Injection site induration [Recovered/Resolved]
  - Cervical incompetence [Not Recovered/Not Resolved]
  - Injection site erythema [Recovered/Resolved]
